FAERS Safety Report 7153801-3 (Version None)
Quarter: 2010Q4

REPORT INFORMATION
  Report Type: 
  Country: None (occurrence: None)
  Receive Date: 20101213
  Receipt Date: 20091205
  Transmission Date: 20110411
  Serious: No
  Sender: FDA-Public Use
  Company Number: US-ABBOTT-09P-163-0612503-00

PATIENT
  Age: 29 Year
  Sex: Female

DRUGS (1)
  1. MERIDIA [Suspect]
     Indication: OVERWEIGHT

REACTIONS (2)
  - DECREASED APPETITE [None]
  - DRY MOUTH [None]
